FAERS Safety Report 9863227 (Version 1)
Quarter: 2014Q1

REPORT INFORMATION
  Report Type: Spontaneous
  Country: IT (occurrence: IT)
  Receive Date: 20140203
  Receipt Date: 20140203
  Transmission Date: 20141002
  Serious: Yes (Death, Hospitalization)
  Sender: FDA-Public Use
  Company Number: IT-TEVA-459175ISR

PATIENT
  Age: 64 Year
  Sex: Female

DRUGS (5)
  1. MYOCET [Suspect]
     Indication: NON-HODGKIN^S LYMPHOMA
     Dosage: 43 MILLIGRAM DAILY;
     Route: 042
     Dates: start: 20131121, end: 20131219
  2. VINCRISTINA SOLFATO [Suspect]
     Indication: NON-HODGKIN^S LYMPHOMA
     Dosage: 1 MILLIGRAM DAILY;
     Route: 040
     Dates: start: 20131121, end: 20131219
  3. CICLOFOSFAMIDE [Suspect]
     Indication: NON-HODGKIN^S LYMPHOMA
     Dosage: 855 MILLIGRAM DAILY;
     Route: 041
     Dates: start: 20131121, end: 20131219
  4. MABTHERA [Suspect]
     Indication: NON-HODGKIN^S LYMPHOMA
     Dosage: 641 MILLIGRAM DAILY;
     Route: 041
     Dates: start: 20131121, end: 20131219
  5. DELTACORTENE 25 MG [Suspect]
     Indication: NON-HODGKIN^S LYMPHOMA
     Dosage: 50 MILLIGRAM DAILY;
     Route: 048
     Dates: start: 20131121, end: 20131219

REACTIONS (3)
  - Pyrexia [Not Recovered/Not Resolved]
  - Pneumonitis [Not Recovered/Not Resolved]
  - Disease progression [Fatal]
